FAERS Safety Report 4838074-6 (Version None)
Quarter: 2005Q4

REPORT INFORMATION
  Report Type: 
  Country: None (occurrence: None)
  Receive Date: 20051128
  Receipt Date: 20051116
  Transmission Date: 20060501
  Serious: Yes (Hospitalization)
  Sender: FDA-Public Use
  Company Number: IL-JNJFOC-20051104579

PATIENT
  Age: 67 Year
  Sex: Female

DRUGS (2)
  1. ITRACONAZOLE [Suspect]
     Indication: ONYCHOMYCOSIS
  2. SINVASTATIN [Interacting]
     Indication: DRUG USE FOR UNKNOWN INDICATION

REACTIONS (6)
  - ALANINE AMINOTRANSFERASE INCREASED [None]
  - ASPARTATE AMINOTRANSFERASE INCREASED [None]
  - BLOOD LACTATE DEHYDROGENASE INCREASED [None]
  - DRUG INTERACTION [None]
  - MYOPATHY [None]
  - TRANSAMINASES INCREASED [None]
